FAERS Safety Report 6975511-5 (Version None)
Quarter: 2010Q3

REPORT INFORMATION
  Report Type: 
  Country: None (occurrence: None)
  Receive Date: 20100910
  Receipt Date: 20100831
  Transmission Date: 20110219
  Serious: Yes (Hospitalization)
  Sender: FDA-Public Use
  Company Number: US-BIOGENIDEC-2010BI026761

PATIENT
  Sex: Male

DRUGS (12)
  1. AVONEX [Suspect]
     Indication: MULTIPLE SCLEROSIS
     Route: 030
     Dates: start: 20000609, end: 20050322
  2. AVONEX [Suspect]
     Route: 030
     Dates: start: 20070325, end: 20080201
  3. ALPRAZOLAM [Concomitant]
     Route: 048
  4. BACLOFEN [Concomitant]
     Route: 048
  5. CARBATROL [Concomitant]
     Route: 048
  6. COMBIVENT [Concomitant]
  7. ASPIRIN [Concomitant]
     Route: 048
  8. LIBRAX [Concomitant]
     Route: 048
  9. FLOVENT [Concomitant]
  10. METOPROLOL TARTRATE [Concomitant]
     Route: 048
  11. NITROGLYCERIN [Concomitant]
     Route: 060
  12. LORTAB [Concomitant]
     Indication: PAIN

REACTIONS (1)
  - CORONARY ARTERY DISEASE [None]
